FAERS Safety Report 18090943 (Version 1)
Quarter: 2020Q3

REPORT INFORMATION
  Report Type: Spontaneous
  Country: US (occurrence: US)
  Receive Date: 20200729
  Receipt Date: 20200729
  Transmission Date: 20201103
  Serious: Yes (Other)
  Sender: FDA-Public Use
  Company Number: None

PATIENT

DRUGS (1)
  1. BLUMEN ADVANCED INSTANT HAND SANITIZER CLEAR [Suspect]
     Active Substance: ALCOHOL
     Route: 061

REACTIONS (8)
  - Paraesthesia [None]
  - Pulmonary congestion [None]
  - Hypoaesthesia [None]
  - Pain [None]
  - Oropharyngeal pain [None]
  - Blister [None]
  - Rash [None]
  - Pruritus [None]
